FAERS Safety Report 15575461 (Version 1)
Quarter: 2018Q4

REPORT INFORMATION
  Report Type: Spontaneous
  Country: US (occurrence: US)
  Receive Date: 20181101
  Receipt Date: 20181101
  Transmission Date: 20190205
  Serious: Yes (Death, Other)
  Sender: FDA-Public Use
  Company Number: US-PFIZER INC-2018444497

PATIENT
  Age: 63 Year
  Sex: Male
  Weight: 63.5 kg

DRUGS (2)
  1. RAPAMUNE [Suspect]
     Active Substance: SIROLIMUS
     Indication: NEOPLASM MALIGNANT
     Dosage: 2 MG, 1X/DAY
     Route: 048
  2. GLEEVEC [Concomitant]
     Active Substance: IMATINIB MESYLATE
     Indication: NEOPLASM MALIGNANT
     Dosage: UNK

REACTIONS (5)
  - Hypoxia [Unknown]
  - Weight decreased [Unknown]
  - Respiratory arrest [Fatal]
  - Neoplasm progression [Unknown]
  - Product use in unapproved indication [Unknown]
